FAERS Safety Report 5735606-0 (Version None)
Quarter: 2008Q2

REPORT INFORMATION
  Report Type: 
  Country: None (occurrence: None)
  Receive Date: 20080512
  Receipt Date: 20080506
  Transmission Date: 20081010
  Serious: Yes (Hospitalization)
  Sender: FDA-Public Use
  Company Number: US-ABBOTT-08P-163-0450714-00

PATIENT
  Sex: Female

DRUGS (4)
  1. MERIDIA [Suspect]
     Indication: WEIGHT CONTROL
     Route: 048
     Dates: start: 20050101, end: 20050101
  2. MERIDIA [Suspect]
     Route: 048
     Dates: start: 20080201, end: 20080301
  3. MERIDIA [Suspect]
     Indication: WEIGHT CONTROL
     Route: 048
     Dates: start: 20050101, end: 20071101
  4. MERIDIA [Suspect]
     Route: 048
     Dates: start: 20080301

REACTIONS (6)
  - ABDOMINAL STRANGULATED HERNIA [None]
  - DRUG EFFECT DECREASED [None]
  - HERNIA [None]
  - HUNGER [None]
  - LOCALISED INFECTION [None]
  - WEIGHT INCREASED [None]
